FAERS Safety Report 9618124 (Version 4)
Quarter: 2015Q2

REPORT INFORMATION
  Report Type: Report from Study
  Country: IT (occurrence: IT)
  Receive Date: 20131013
  Receipt Date: 20150413
  Transmission Date: 20150821
  Serious: Yes (Hospitalization, Other)
  Sender: FDA-Public Use
  Company Number: IT-AMGEN-ITACT2013070757

PATIENT
  Age: 51 Year
  Sex: Male
  Weight: 83 kg

DRUGS (5)
  1. TAXOTERE [Concomitant]
     Active Substance: DOCETAXEL
     Indication: GASTRIC CANCER
     Dosage: 120 UNIT, Q2WK
     Route: 042
     Dates: start: 20130926, end: 20130926
  2. 5 FLUOROURACIL                     /00098801/ [Concomitant]
     Active Substance: FLUOROURACIL
     Indication: GASTRIC CANCER
     Dosage: UNK UNK, Q2WK
     Route: 042
     Dates: start: 20130926, end: 20130926
  3. PANITUMUMAB [Suspect]
     Active Substance: PANITUMUMAB
     Indication: GASTRIC CANCER
     Dosage: UNK
     Route: 065
     Dates: start: 20130926
  4. FOLINIC ACID [Concomitant]
     Active Substance: LEUCOVORIN
     Indication: GASTRIC CANCER
     Dosage: UNK UNK, Q2WK
  5. CISPLATIN. [Concomitant]
     Active Substance: CISPLATIN
     Indication: GASTRIC CANCER
     Dosage: 100 UNIT, Q2WK
     Route: 042
     Dates: start: 20130926, end: 20130926

REACTIONS (1)
  - Diverticular perforation [Recovered/Resolved with Sequelae]

NARRATIVE: CASE EVENT DATE: 20130927
